FAERS Safety Report 5530118-1 (Version None)
Quarter: 2007Q4

REPORT INFORMATION
  Report Type: 
  Country: None (occurrence: None)
  Receive Date: 20071130
  Receipt Date: 20071120
  Transmission Date: 20080405
  Serious: Yes (Hospitalization)
  Sender: FDA-Public Use
  Company Number: PHHO2007US19236

PATIENT
  Age: 77 Year
  Sex: Male
  Weight: 94.1 kg

DRUGS (19)
  1. *CGP 57148B* [Suspect]
     Indication: NON-SMALL CELL LUNG CANCER
     Dosage: NO TREATMENT
     Dates: start: 20070923, end: 20070927
  2. *CGP 57148B* [Suspect]
     Dosage: 600 MG, QD
     Route: 048
     Dates: start: 20070928, end: 20070929
  3. *CGP 57148B* [Suspect]
     Dosage: NO TREATMENT
     Dates: start: 20070930, end: 20070930
  4. *CGP 57148B* [Suspect]
     Dosage: 600 MG, QD
     Route: 048
     Dates: start: 20071001, end: 20071001
  5. *CGP 57148B* [Suspect]
     Dosage: NO TREATMENT
     Route: 048
     Dates: start: 20071002, end: 20071002
  6. *CGP 57148B* [Suspect]
     Dosage: 600 MG, QD
     Route: 048
     Dates: start: 20071003, end: 20071006
  7. *CGP 57148B* [Suspect]
     Dosage: NO TREATMENT
     Dates: start: 20071007, end: 20071016
  8. *CGP 57148B* [Suspect]
     Dosage: 600 MG, QD
     Route: 048
     Dates: start: 20071017, end: 20071020
  9. *CGP 57148B* [Suspect]
     Dosage: NO TREATMENT
     Dates: start: 20071021, end: 20071023
  10. *CGP 57148B* [Suspect]
     Dosage: 600 MG, QD
     Route: 048
     Dates: start: 20071024, end: 20071027
  11. *CGP 57148B* [Suspect]
     Dosage: NO TREATMENT
     Dates: start: 20071028, end: 20071030
  12. *CGP 57148B* [Suspect]
     Dosage: 600 MG, QD
     Route: 048
     Dates: start: 20071031, end: 20071101
  13. *CGP 57148B* [Suspect]
     Dosage: 600 MG, QD
     Route: 048
     Dates: start: 20070919, end: 20070922
  14. SIMVASTATIN [Concomitant]
  15. LASIX [Concomitant]
  16. HYDRALAZINE HCL [Concomitant]
  17. LISINOPRIL [Concomitant]
  18. METOPROLOL [Concomitant]
  19. NITROGLYCERIN [Concomitant]

REACTIONS (9)
  - ACUTE CORONARY SYNDROME [None]
  - ACUTE MYOCARDIAL INFARCTION [None]
  - BRAIN NATRIURETIC PEPTIDE INCREASED [None]
  - CARDIAC ENZYMES INCREASED [None]
  - DIASTOLIC DYSFUNCTION [None]
  - DYSPNOEA [None]
  - EJECTION FRACTION DECREASED [None]
  - LUNG INFECTION [None]
  - MITRAL VALVE INCOMPETENCE [None]
